FAERS Safety Report 4485974-5 (Version None)
Quarter: 2004Q4

REPORT INFORMATION
  Report Type: 
  Country: None (occurrence: None)
  Receive Date: 20041022
  Receipt Date: 20041006
  Transmission Date: 20050328
  Serious: Yes (Death)
  Sender: FDA-Public Use
  Company Number: 2004-BP-09676RO

PATIENT
  Age: 45 Year
  Sex: Female
  Weight: 69 kg

DRUGS (3)
  1. MORPHINE SUL TAB [Suspect]
     Dosage: IV
     Route: 042
  2. ANALGESICS (ANALGESICS) [Concomitant]
  3. MUSCLE RELAXANTS (MUSCLE RELAXANTS) [Concomitant]

REACTIONS (1)
  - MULTIPLE DRUG OVERDOSE [None]
